FAERS Safety Report 17290615 (Version 3)
Quarter: 2020Q2

REPORT INFORMATION
  Report Type: Report from Study
  Country: US (occurrence: US)
  Receive Date: 20200121
  Receipt Date: 20200617
  Transmission Date: 20200713
  Serious: No
  Sender: FDA-Public Use
  Company Number: NVSC2020US013589

PATIENT
  Sex: Male

DRUGS (1)
  1. COSENTYX [Suspect]
     Active Substance: SECUKINUMAB
     Indication: PSORIATIC ARTHROPATHY
     Dosage: UNK UNK, QMO (EVERY 4 WEEKS)
     Route: 058

REACTIONS (4)
  - Malaise [Unknown]
  - Product dose omission [Unknown]
  - Rhinorrhoea [Unknown]
  - Arthralgia [Unknown]
